FAERS Safety Report 8786017 (Version 1)
Quarter: 2012Q4

REPORT INFORMATION
  Report Type: Report from Study
  Country: US (occurrence: US)
  Receive Date: 20120914
  Receipt Date: 20120914
  Transmission Date: 20130627
  Serious: No
  Sender: FDA-Public Use
  Company Number: US-VERTEX PHARMACEUTICAL INC.-AE-2012-009926

PATIENT

DRUGS (6)
  1. INCIVEK [Suspect]
     Indication: HEPATITIS C
     Route: 048
  2. PEGASYS INJ PROCLICK [Concomitant]
     Indication: HEPATITIS C
     Route: 058
  3. RIBAVIRIN [Concomitant]
     Indication: HEPATITIS C
  4. FOLIC ACID [Concomitant]
     Route: 048
  5. SYNTHROID [Concomitant]
     Route: 048
  6. CITALOPRAM [Concomitant]
     Route: 048

REACTIONS (11)
  - Dyspnoea [Unknown]
  - Dizziness [Unknown]
  - Pollakiuria [Unknown]
  - Epistaxis [Unknown]
  - Influenza like illness [Unknown]
  - Muscle fatigue [Unknown]
  - Anxiety [Unknown]
  - Dry skin [Unknown]
  - Fatigue [Unknown]
  - Red blood cell count decreased [Unknown]
  - Pruritus [Unknown]
